FAERS Safety Report 19626155 (Version 1)
Quarter: 2021Q3

REPORT INFORMATION
  Report Type: Spontaneous
  Country: US (occurrence: US)
  Receive Date: 20210728
  Receipt Date: 20210728
  Transmission Date: 20211014
  Serious: No
  Sender: FDA-Public Use
  Company Number: None

PATIENT
  Age: 25 Year
  Sex: Female
  Weight: 96.39 kg

DRUGS (1)
  1. OCREVUS [Suspect]
     Active Substance: OCRELIZUMAB
     Indication: MULTIPLE SCLEROSIS
     Dosage: ?          OTHER FREQUENCY:EVERY 6 MONTHS;?
     Route: 041

REACTIONS (6)
  - Infusion related reaction [None]
  - Flushing [None]
  - Chest discomfort [None]
  - Asthenia [None]
  - Throat irritation [None]
  - Tachycardia [None]

NARRATIVE: CASE EVENT DATE: 20210728
